FAERS Safety Report 9491162 (Version 2)
Quarter: 2014Q1

REPORT INFORMATION
  Report Type: Spontaneous
  Country: JP (occurrence: JP)
  Receive Date: 20130830
  Receipt Date: 20140311
  Transmission Date: 20141002
  Serious: Yes (Hospitalization, Other)
  Sender: FDA-Public Use
  Company Number: PHHY2013JP094244

PATIENT
  Age: 59 Year
  Sex: Female

DRUGS (2)
  1. ZOLEDRONATE [Suspect]
     Indication: PLASMA CELL MYELOMA
     Dosage: UNK
     Route: 041
  2. CHEMOTHERAPEUTICS [Concomitant]

REACTIONS (4)
  - Convulsion [Unknown]
  - Psychiatric symptom [Unknown]
  - Renal impairment [Unknown]
  - Hypocalcaemia [Unknown]
